FAERS Safety Report 4598469-5 (Version None)
Quarter: 2005Q1

REPORT INFORMATION
  Report Type: 
  Country: None (occurrence: None)
  Receive Date: 20050304
  Receipt Date: 20050224
  Transmission Date: 20050727
  Serious: Yes (Hospitalization)
  Sender: FDA-Public Use
  Company Number: US-JNJFOC-20050300070

PATIENT
  Sex: Female
  Weight: 61.24 kg

DRUGS (2)
  1. DURAGESIC-100 [Suspect]
     Route: 062
     Dates: start: 20040101
  2. DURAGESIC-100 [Suspect]
     Route: 062
     Dates: start: 20040101

REACTIONS (3)
  - ASTHENIA [None]
  - CONTUSION [None]
  - FALL [None]
